FAERS Safety Report 6486853-4 (Version None)
Quarter: 2009Q4

REPORT INFORMATION
  Report Type: 
  Country: None (occurrence: None)
  Receive Date: 20091210
  Receipt Date: 20091109
  Transmission Date: 20100525
  Serious: No
  Sender: FDA-Public Use
  Company Number: US-BAYER-200938851NA

PATIENT
  Age: 43 Year
  Sex: Female

DRUGS (3)
  1. DROSPIRENONE AND EHTINYL ESTRADIOL [Suspect]
     Indication: ENDOMETRIOSIS
     Route: 048
     Dates: start: 20080101
  2. ADVIL [Concomitant]
     Route: 048
  3. ASPIRIN [Concomitant]
     Route: 048

REACTIONS (5)
  - MOUTH BREATHING [None]
  - SINUS CONGESTION [None]
  - SNEEZING [None]
  - SWELLING FACE [None]
  - THROAT IRRITATION [None]
